FAERS Safety Report 4622726-7 (Version None)
Quarter: 2005Q1

REPORT INFORMATION
  Report Type: 
  Country: None (occurrence: None)
  Receive Date: 20050328
  Receipt Date: 20050328
  Transmission Date: 20050727
  Serious: Yes (Life-Threatening)
  Sender: FDA-Public Use
  Company Number: None

PATIENT
  Age: 64 Year
  Sex: Male
  Weight: 109.7705 kg

DRUGS (6)
  1. IRESSA [Suspect]
     Indication: COLON CANCER METASTATIC
     Dosage: 250 MG PO QD X 2 WK
     Route: 048
     Dates: start: 20050412
  2. CPT-11  FOLFIRI [Suspect]
     Indication: COLON CANCER METASTATIC
     Dosage: 180 MG/M2 IV ON DAY 1 OF EACH CYCLE
     Route: 042
     Dates: start: 20050412
  3. LEUCOVORIN CALCIUM [Suspect]
     Dosage: 200 MG/M2 IV ON DAY 1 OF EACH CYCLE
     Route: 042
  4. FLUOROURACIL [Suspect]
     Dosage: 400 MG/M2 IV ON DAY 1 OF EACH CYCLE
     Route: 042
  5. FLUOROURACIL [Suspect]
     Dosage: 2400 MG/M2 IV IS CONNECTED ON DAY 1 OF EACH CYCLE AND IS CONTINUOUS INFUSION OVER THE NEXT 46 HOURS
     Route: 042
  6. ... [Concomitant]

REACTIONS (3)
  - ANXIETY [None]
  - BLOOD PRESSURE FLUCTUATION [None]
  - PULMONARY EMBOLISM [None]
